FAERS Safety Report 16400144 (Version 2)
Quarter: 2020Q2

REPORT INFORMATION
  Report Type: Spontaneous
  Country: US (occurrence: US)
  Receive Date: 20190606
  Receipt Date: 20200623
  Transmission Date: 20200713
  Serious: No
  Sender: FDA-Public Use
  Company Number: US-ALLERGAN-1916367US

PATIENT
  Age: 61 Year
  Sex: Female

DRUGS (2)
  1. INFUSION TX [Concomitant]
     Indication: CROHN^S DISEASE
  2. KYBELLA [Suspect]
     Active Substance: DEOXYCHOLIC ACID
     Indication: LIPOLYSIS PROCEDURE
     Dosage: 2.4 ML, SINGLE
     Route: 058
     Dates: start: 20180710, end: 20180710

REACTIONS (1)
  - Swelling [Not Recovered/Not Resolved]
